FAERS Safety Report 16005920 (Version 1)
Quarter: 2019Q1

REPORT INFORMATION
  Report Type: Spontaneous
  Country: US (occurrence: US)
  Receive Date: 20190226
  Receipt Date: 20190226
  Transmission Date: 20190418
  Serious: Yes (Other)
  Sender: FDA-Public Use
  Company Number: US-PFIZER INC-2019084634

PATIENT
  Age: 52 Year
  Sex: Male

DRUGS (5)
  1. ALBUTEROL HFA [Concomitant]
     Active Substance: ALBUTEROL SULFATE
     Indication: ASTHMA
     Dosage: UNK, 2X/DAY (90 MG/ACTUATED HYDROFLUOROALKANE AEROSOL 1 TO 2 PUFFS, AS NEEDED)
     Route: 055
  2. ALLOPURINOL. [Concomitant]
     Active Substance: ALLOPURINOL
     Indication: GOUT
     Dosage: 100 MG, 1X/DAY
     Route: 048
  3. OMEPRAZOLE. [Concomitant]
     Active Substance: OMEPRAZOLE
     Indication: GASTROOESOPHAGEAL REFLUX DISEASE
     Dosage: 40 MG, 1X/DAY
     Route: 048
  4. FLUTICASONE/SALMETEROL [Concomitant]
     Dosage: UNK, 2X/DAY (250-50 MG 1 PUFF)
     Route: 055
  5. IBUPROFEN. [Suspect]
     Active Substance: IBUPROFEN
     Indication: BACK PAIN
     Dosage: 200 MG, UNK
     Route: 048

REACTIONS (1)
  - Aspirin-exacerbated respiratory disease [Unknown]
